FAERS Safety Report 16281866 (Version 2)
Quarter: 2020Q3

REPORT INFORMATION
  Report Type: Spontaneous
  Country: CH (occurrence: CH)
  Receive Date: 20190507
  Receipt Date: 20200903
  Transmission Date: 20201102
  Serious: Yes (Death, Other)
  Sender: FDA-Public Use
  Company Number: CH-PFIZER INC-2019190418

PATIENT
  Age: 63 Year
  Sex: Male

DRUGS (39)
  1. VANCOMYCIN [Suspect]
     Active Substance: VANCOMYCIN
     Dosage: 1000 MG, 2X/DAY
     Route: 041
     Dates: start: 20190416, end: 20190417
  2. VANCOMYCIN [Suspect]
     Active Substance: VANCOMYCIN
     Dosage: 1000 MG, 2X/DAY
     Route: 041
     Dates: start: 20190502, end: 20190508
  3. TORASEMIDE [Suspect]
     Active Substance: TORSEMIDE
     Dosage: 5 MG, 1X/DAY
     Route: 048
     Dates: start: 20190426, end: 20190427
  4. TRAMADOL. [Suspect]
     Active Substance: TRAMADOL
     Dosage: 50 MG, 4X/DAY
     Route: 048
     Dates: start: 20190417, end: 20190501
  5. VALACICLOVIR [Suspect]
     Active Substance: VALACYCLOVIR HYDROCHLORIDE
     Dosage: 500 MG, 1X/DAY
     Route: 048
     Dates: start: 20190409
  6. DEXAMETHASONE. [Concomitant]
     Active Substance: DEXAMETHASONE
     Dosage: 20 MG, 1X/DAY
     Route: 041
     Dates: start: 20190416, end: 20190417
  7. CO TRIMOXAZOL [Concomitant]
     Active Substance: SULFAMETHOXAZOLE\TRIMETHOPRIM
     Dosage: 160 MG, UNK
     Route: 048
     Dates: start: 20190412, end: 20190415
  8. VINCRISTINE SULFATE. [Suspect]
     Active Substance: VINCRISTINE SULFATE
     Dosage: 1 MG, IN TOTAL
     Route: 041
     Dates: start: 20190423, end: 20190423
  9. PREGABALIN. [Suspect]
     Active Substance: PREGABALIN
     Dosage: 50 MG
     Route: 041
     Dates: start: 20190420, end: 20190502
  10. HEPARIN SODIUM. [Suspect]
     Active Substance: HEPARIN SODIUM
     Dosage: 100000 IU, 1X/DAY
     Route: 058
     Dates: start: 20190410, end: 20190416
  11. DEXAMETHASONE. [Concomitant]
     Active Substance: DEXAMETHASONE
     Dosage: 20 MG, 1X/DAY
     Route: 041
     Dates: start: 20190507
  12. LORAZEPAM. [Suspect]
     Active Substance: LORAZEPAM
     Indication: RESTLESS LEGS SYNDROME
     Dosage: 0.5 MG, UNK
     Route: 048
     Dates: start: 20190410
  13. PREGABALIN. [Suspect]
     Active Substance: PREGABALIN
     Dosage: 100 MG
     Route: 041
     Dates: start: 20190502
  14. ALLOPURINOL. [Suspect]
     Active Substance: ALLOPURINOL
     Dosage: 300 MG, DAILY
     Route: 048
     Dates: start: 20190409, end: 20190426
  15. ALLOPURINOL. [Suspect]
     Active Substance: ALLOPURINOL
     Dosage: 300 MG, DAILY
     Route: 048
     Dates: start: 20190507
  16. CEFEPIME [Concomitant]
     Active Substance: CEFEPIME HYDROCHLORIDE
     Indication: PYREXIA
     Dosage: 2 G, 2X/DAY
     Route: 041
     Dates: start: 20190411
  17. MORPHINE [Concomitant]
     Active Substance: MORPHINE
     Dosage: 2 MG, IN TOTAL
     Route: 041
     Dates: start: 20190414, end: 20190414
  18. IDARUBICIN HCL [Suspect]
     Active Substance: IDARUBICIN HYDROCHLORIDE
     Dosage: 10 MG, IN TOTAL
     Route: 041
     Dates: start: 20190423, end: 20190424
  19. VINCRISTINE SULFATE. [Suspect]
     Active Substance: VINCRISTINE SULFATE
     Indication: ACUTE LEUKAEMIA
     Dosage: 1 MG, IN TOTAL
     Route: 041
     Dates: start: 20190416, end: 20190416
  20. PREGABALIN. [Suspect]
     Active Substance: PREGABALIN
     Dosage: 50 MG
     Route: 041
     Dates: start: 20190416, end: 20190416
  21. RITUXIMAB. [Suspect]
     Active Substance: RITUXIMAB
     Dosage: 300 MG, 1 IN TOTAL
     Route: 041
     Dates: start: 20190417, end: 20190418
  22. PARACETAMOL [Suspect]
     Active Substance: ACETAMINOPHEN
     Dosage: 1000 MG, AS NEEDED (IN TOTAL)
     Route: 041
     Dates: start: 20190410, end: 20190416
  23. TRAMADOL. [Suspect]
     Active Substance: TRAMADOL
     Dosage: 50 MG, 4X/DAY
     Route: 048
     Dates: start: 20190412, end: 20190417
  24. CLEMASTINE [Concomitant]
     Active Substance: CLEMASTINE
     Dosage: 4 MG, IN TOTAL
     Route: 041
     Dates: start: 20190416, end: 20190416
  25. DEXAMETHASONE. [Concomitant]
     Active Substance: DEXAMETHASONE
     Dosage: 20 MG, 1X/DAY
     Route: 048
     Dates: start: 20190411, end: 20190415
  26. RITUXIMAB. [Suspect]
     Active Substance: RITUXIMAB
     Indication: ACUTE LEUKAEMIA
     Dosage: 125 MG/M2, 50 ML IN TOTAL
     Route: 041
     Dates: start: 20190416, end: 20190416
  27. PARACETAMOL [Suspect]
     Active Substance: ACETAMINOPHEN
     Dosage: 2 G, AS NEEDED (IN TOTAL)
     Route: 041
     Dates: end: 20190430
  28. ONDANSETRON [Suspect]
     Active Substance: ONDANSETRON
     Dosage: 8 MG, 3X/DAY
     Route: 048
     Dates: start: 20190416, end: 20190418
  29. PETHIDINE [Concomitant]
     Active Substance: MEPERIDINE
     Dosage: 25 MG, IN TOTAL
     Route: 041
     Dates: start: 20190416, end: 20190416
  30. VITAMIN B12 [Concomitant]
     Active Substance: CYANOCOBALAMIN
     Dosage: 1000 UG, IN TOTAL
     Route: 030
     Dates: start: 20190415, end: 20190415
  31. MORPHINE [Concomitant]
     Active Substance: MORPHINE
     Dosage: 6 MG, IN TOTAL
     Route: 041
     Dates: start: 20190414, end: 20190414
  32. PREGABALIN. [Suspect]
     Active Substance: PREGABALIN
     Dosage: 50 MG, IN TOTAL
     Route: 048
     Dates: start: 20190416, end: 20190416
  33. ONDANSETRON [Suspect]
     Active Substance: ONDANSETRON
     Dosage: 8 MG, 3X/DAY
     Route: 048
     Dates: start: 20190418, end: 20190504
  34. FLUCONAZOLE. [Concomitant]
     Active Substance: FLUCONAZOLE
     Dosage: 200 MG, 1X/DAY
     Route: 048
     Dates: start: 20190412, end: 20190416
  35. IDARUBICIN HCL [Suspect]
     Active Substance: IDARUBICIN HYDROCHLORIDE
     Indication: ACUTE LEUKAEMIA
     Dosage: 10 MG, IN TOTAL
     Route: 041
     Dates: start: 20190416, end: 20190416
  36. LORAZEPAM. [Suspect]
     Active Substance: LORAZEPAM
     Dosage: UNK
     Dates: start: 20190414
  37. HEPARIN SODIUM. [Suspect]
     Active Substance: HEPARIN SODIUM
     Dosage: 7500 IU, 1X/DAY
     Route: 058
     Dates: start: 20190421
  38. NEXIUM [Suspect]
     Active Substance: ESOMEPRAZOLE MAGNESIUM
     Dosage: 40 MG, UNK
     Route: 041
     Dates: start: 20190411, end: 20190430
  39. TORASEMIDE [Suspect]
     Active Substance: TORSEMIDE
     Dosage: 10 MG, 1X/DAY
     Route: 048
     Dates: start: 20190413, end: 20190420

REACTIONS (2)
  - Hepatic enzyme increased [Recovered/Resolved]
  - Hepatocellular injury [Unknown]

NARRATIVE: CASE EVENT DATE: 20190415
